FAERS Safety Report 5090691-7 (Version None)
Quarter: 2006Q3

REPORT INFORMATION
  Report Type: 
  Country: None (occurrence: None)
  Receive Date: 20060823
  Receipt Date: 20060808
  Transmission Date: 20061208
  Serious: Yes (Life-Threatening)
  Sender: FDA-Public Use
  Company Number: 2006-DE-04176GD

PATIENT
  Sex: Female

DRUGS (15)
  1. PREDNISONE TAB [Suspect]
     Indication: ANTIPHOSPHOLIPID SYNDROME
     Dosage: UP TO 40 MG, 80 MG, UP TO 100 MG
     Dates: start: 19870101, end: 20030101
  2. PREDNISONE TAB [Suspect]
     Indication: SYSTEMIC LUPUS ERYTHEMATOSUS
     Dosage: UP TO 40 MG, 80 MG, UP TO 100 MG
     Dates: start: 19870101, end: 20030101
  3. AZATHIOPRINE [Suspect]
     Indication: ANTIPHOSPHOLIPID SYNDROME
     Dates: start: 20000101, end: 20001201
  4. CYCLOPHOSPHAMIDE [Suspect]
     Indication: ANTIPHOSPHOLIPID SYNDROME
     Dosage: 1 G (WEEKLY)
     Dates: start: 20001101, end: 20030201
  5. CYCLOPHOSPHAMIDE [Suspect]
     Indication: ANTIPHOSPHOLIPID SYNDROME
     Dosage: 1 G (WEEKLY)
     Dates: start: 20020101
  6. DANAZOL [Suspect]
     Indication: ANTIPHOSPHOLIPID SYNDROME
     Dates: start: 20000101, end: 20001201
  7. IMMUNOGLOBULINS (IMMUNOGLOBULINS) [Suspect]
     Indication: ANTIPHOSPHOLIPID SYNDROME
     Dosage: IV
     Route: 042
     Dates: start: 20000101, end: 20030201
  8. CYCLOSPORINE [Suspect]
     Indication: ANTIPHOSPHOLIPID SYNDROME
     Dates: start: 20001101, end: 20030201
  9. DAPSONE [Suspect]
     Indication: ANTIPHOSPHOLIPID SYNDROME
  10. HYDROXYCHLOROQUINE SULFATE [Concomitant]
  11. NIFEDIPINE [Concomitant]
  12. WARFARIN SODIUM [Concomitant]
  13. PAMIDRONATE DISODIUM [Concomitant]
  14. CALCIUM (CALCIUM) [Concomitant]
  15. VITAMIN D [Concomitant]

REACTIONS (20)
  - ABORTION SPONTANEOUS [None]
  - ANAEMIA [None]
  - ANTIPHOSPHOLIPID SYNDROME [None]
  - ASPARTATE AMINOTRANSFERASE INCREASED [None]
  - ATRIAL THROMBOSIS [None]
  - BLOOD BILIRUBIN INCREASED [None]
  - CUTANEOUS VASCULITIS [None]
  - DEEP VEIN THROMBOSIS [None]
  - DRUG EFFECT DECREASED [None]
  - DRUG EXPOSURE DURING PREGNANCY [None]
  - ECTOPIC PREGNANCY [None]
  - GASTRITIS EROSIVE [None]
  - INTRA-ABDOMINAL HAEMORRHAGE [None]
  - NEUROPATHY PERIPHERAL [None]
  - PREGNANCY [None]
  - PULMONARY EMBOLISM [None]
  - RAYNAUD'S PHENOMENON [None]
  - SYNOVITIS [None]
  - THERAPY NON-RESPONDER [None]
  - THROMBOCYTOPENIA [None]
